FAERS Safety Report 7401737-2 (Version None)
Quarter: 2011Q2

REPORT INFORMATION
  Report Type: 
  Country: None (occurrence: None)
  Receive Date: 20110408
  Receipt Date: 20081027
  Transmission Date: 20111010
  Serious: Yes (Hospitalization, Other)
  Sender: FDA-Public Use
  Company Number: US-BAYER-200836854NA

PATIENT
  Sex: Female
  Weight: 61 kg

DRUGS (35)
  1. TRASYLOL [Suspect]
  2. DOPAMINE [Concomitant]
     Indication: UNEVALUABLE EVENT
     Dosage: 5 MCG/KG/MIN, TOTAL 96111.6 MCG
     Route: 042
     Dates: start: 20070531, end: 20070602
  3. PAPAVERINE [Concomitant]
     Dosage: 60 MG, UNK
     Route: 042
     Dates: start: 20070531
  4. KANAMYCIN [Concomitant]
     Dosage: 500 MG X 2
     Route: 042
     Dates: start: 20070531
  5. INSULIN [Concomitant]
     Dosage: 0.76 U, UNK
     Route: 042
     Dates: start: 20070531, end: 20070602
  6. MANNITOL [Concomitant]
     Dosage: 12.5 G, UNK
     Route: 042
     Dates: start: 20070531
  7. ALLOPURINOL [Concomitant]
     Dosage: 300 MG, QD
     Route: 048
     Dates: start: 19940711
  8. CEFUROXIME [Concomitant]
     Dosage: 1.5 G, UNK
     Route: 042
     Dates: start: 20070531
  9. HYZAAR [Concomitant]
     Indication: BLOOD PRESSURE ABNORMAL
     Dosage: 100/25
     Route: 048
     Dates: start: 20030128
  10. LOPRESSOR [Concomitant]
     Dosage: 25-50 MG DAILY TO TWICE DAILY
     Dates: start: 20070529
  11. HEPARIN [Concomitant]
     Dosage: 20000 U, UNK
     Route: 042
     Dates: start: 20070531, end: 20070531
  12. PLAVIX [Concomitant]
     Indication: CARDIOVASCULAR DISORDER
     Dosage: 75 MG, QD
     Route: 048
     Dates: start: 20070529
  13. ACETYLSALICYLIC ACID SRT [Concomitant]
     Dosage: 325 MG, QD
     Route: 048
     Dates: start: 20070529
  14. VERSED [Concomitant]
     Dosage: 2.5 MG, UNK
     Route: 042
     Dates: start: 20070531
  15. COREG [Concomitant]
     Indication: BLOOD PRESSURE ABNORMAL
     Dosage: 6.25-50 MG TWICE DAILY
     Route: 048
     Dates: start: 20070613
  16. PANCURONIUM BROMIDE [Concomitant]
     Dosage: 3-7 MG, TOTAL 10 MG
     Route: 042
     Dates: start: 20070531, end: 20070531
  17. ISOVUE-128 [Concomitant]
     Indication: CATHETERISATION CARDIAC
     Dosage: UNK
     Dates: start: 20070530
  18. LIDOCAINE [Concomitant]
     Dosage: 30 CC X 10
     Dates: start: 20070531
  19. LEVOPHED [Concomitant]
     Dosage: 5-25 ML/HOUR, TOTAL 39.76 ML
     Route: 042
     Dates: start: 20070531
  20. MILRINONE [Concomitant]
     Dosage: 1 MG, UNK
     Route: 042
     Dates: start: 20070531
  21. PROTAMINE SULFATE [Concomitant]
     Dosage: 250 MG, UNK
     Route: 042
     Dates: start: 20070531
  22. SUFENTANIL [Concomitant]
     Dosage: 100-300 MCG, TOTAL 750 MCG
     Route: 042
     Dates: start: 20070531
  23. THROMBIN LOCAL SOLUTION [Concomitant]
     Dosage: 5000 UNITS X 3
     Route: 042
     Dates: start: 20070531
  24. DIOVAN [Concomitant]
     Indication: BLOOD PRESSURE ABNORMAL
     Dosage: 160-320 MG DAILY TO TWICE DAILY
     Route: 048
     Dates: start: 20020204
  25. LISINOPRIL AND HYDROCHLOROTHIAZIDE [Concomitant]
     Indication: BLOOD PRESSURE ABNORMAL
     Dosage: 20/25 MG
     Route: 048
     Dates: start: 20060721
  26. VYTORIN [Concomitant]
     Indication: BLOOD CHOLESTEROL ABNORMAL
     Dosage: 10/40 DAILY
     Route: 048
     Dates: start: 20070613
  27. DIPHENHYDRAMINE HCL [Concomitant]
     Dosage: 100 MG, UNK
     Route: 042
     Dates: start: 20070531
  28. LASIX [Concomitant]
     Dosage: 40 MG, QD
     Route: 048
     Dates: start: 20070613
  29. MONOPRIL [Concomitant]
     Indication: BLOOD PRESSURE ABNORMAL
     Dosage: 10-40 MG DAILY TO TWICE DAILY
     Route: 048
     Dates: start: 19971126
  30. TRASYLOL [Suspect]
     Indication: CORONARY ARTERY BYPASS
     Dosage: 200 ML BOLUS, THEN 50 ML/HR, TOTAL 367.57 ML
     Route: 042
     Dates: start: 20070531, end: 20070531
  31. HEPARIN [Concomitant]
     Dosage: 5000 UNITS BOLUS, 10 ML/HOUR DRIP
     Route: 042
     Dates: start: 20070529
  32. MIDAZOLAM [Concomitant]
     Dosage: 5 MG, UNK
     Route: 042
     Dates: start: 20070531
  33. VANCOMYCIN [Concomitant]
     Dosage: 1000 MG X 2
     Route: 042
     Dates: start: 20070531
  34. ISORDIL [Concomitant]
     Dosage: 30-60 MG DAILY TO TWICE DAILY
     Route: 048
     Dates: start: 20070613
  35. INDOMETHACIN [Concomitant]
     Indication: PAIN
     Dosage: 25-50 MG, TID
     Route: 048
     Dates: start: 19990408

REACTIONS (23)
  - EMOTIONAL DISTRESS [None]
  - UNEVALUABLE EVENT [None]
  - ACUTE MYOCARDIAL INFARCTION [None]
  - ANAEMIA OF CHRONIC DISEASE [None]
  - CORONARY ARTERY DISEASE [None]
  - NAUSEA [None]
  - HYPERCALCAEMIA [None]
  - RENAL FAILURE [None]
  - RENAL INJURY [None]
  - STRESS [None]
  - SEPSIS [None]
  - RESPIRATORY FAILURE [None]
  - DIARRHOEA [None]
  - ANXIETY [None]
  - RENAL FAILURE ACUTE [None]
  - RENAL IMPAIRMENT [None]
  - FEAR [None]
  - ABDOMINAL DISCOMFORT [None]
  - HYPERPARATHYROIDISM [None]
  - PAIN [None]
  - HAEMODIALYSIS [None]
  - RENAL FAILURE CHRONIC [None]
  - ANAEMIA [None]
